FAERS Safety Report 4541679-3 (Version None)
Quarter: 2004Q4

REPORT INFORMATION
  Report Type: 
  Country: None (occurrence: None)
  Receive Date: 20041227
  Receipt Date: 20041213
  Transmission Date: 20050328
  Serious: No
  Sender: FDA-Public Use
  Company Number: 2004AC01008

PATIENT
  Age: 32 Year
  Sex: Female

DRUGS (1)
  1. ARIMIDEX [Suspect]
     Dosage: 1 MG DAILY PO
     Route: 048
     Dates: start: 20040806

REACTIONS (1)
  - PERIPHERAL MOTOR NEUROPATHY [None]
